FAERS Safety Report 6697665-0 (Version None)
Quarter: 2010Q2

REPORT INFORMATION
  Report Type: 
  Country: None (occurrence: None)
  Receive Date: 20100423
  Receipt Date: 20100414
  Transmission Date: 20101027
  Serious: Yes (Hospitalization)
  Sender: FDA-Public Use
  Company Number: 7001662

PATIENT
  Age: 43 Year
  Sex: Male
  Weight: 84 kg

DRUGS (12)
  1. REBIF [Suspect]
     Indication: MULTIPLE SCLEROSIS
     Dosage: 44 MCG, 3 IN 1 WK, SUBCUTANEOUS
     Route: 058
     Dates: start: 20071022, end: 20100301
  2. REBIF [Suspect]
     Indication: MULTIPLE SCLEROSIS
     Dosage: 44 MCG, 3 IN 1 WK, SUBCUTANEOUS
     Route: 058
     Dates: start: 20100101
  3. CLONAZEPAM [Concomitant]
  4. LYRICA [Concomitant]
  5. CYMBALTA [Concomitant]
  6. WELLBUTRIN [Concomitant]
  7. GABAPENTIN [Concomitant]
  8. HYDROCODONE (HYDROCODONE) [Concomitant]
  9. INSULIN SLIDING SCALE (INSULIN) [Concomitant]
  10. SIMVASTATIN [Concomitant]
  11. ATENOLOL [Concomitant]
  12. DIAZEPAM [Concomitant]

REACTIONS (7)
  - ACCIDENTAL OVERDOSE [None]
  - ANXIETY [None]
  - DEPRESSION [None]
  - FATIGUE [None]
  - MEMORY IMPAIRMENT [None]
  - PAIN [None]
  - POOR QUALITY SLEEP [None]
